FAERS Safety Report 7176364-5 (Version None)
Quarter: 2010Q4

REPORT INFORMATION
  Report Type: 
  Country: None (occurrence: None)
  Receive Date: 20101220
  Receipt Date: 20101206
  Transmission Date: 20110411
  Serious: Yes (Death)
  Sender: FDA-Public Use
  Company Number: CA-JNJFOC-20100906304

PATIENT
  Age: 71 Year
  Sex: Female
  Weight: 30.84 kg

DRUGS (2)
  1. TYLENOL (CAPLET) [Suspect]
     Route: 048
  2. TYLENOL (CAPLET) [Suspect]
     Indication: ARTHRALGIA
     Dosage: 2 CAPLETS EVERY 8 HOURS
     Route: 048

REACTIONS (2)
  - BLOOD GLUCOSE INCREASED [None]
  - DEATH [None]
